FAERS Safety Report 13698333 (Version 7)
Quarter: 2017Q3

REPORT INFORMATION
  Report Type: Spontaneous
  Country: GR (occurrence: GR)
  Receive Date: 20170628
  Receipt Date: 20170824
  Transmission Date: 20171127
  Serious: Yes (Hospitalization, Other)
  Sender: FDA-Public Use
  Company Number: GR-UCBSA-2017024339

PATIENT
  Age: 41 Year
  Sex: Female

DRUGS (10)
  1. DAKTARIN [Concomitant]
     Active Substance: MICONAZOLE NITRATE
     Indication: ORAL MUCOSA EROSION
     Dosage: UNK
     Dates: start: 2017
  2. CIMZIA [Suspect]
     Active Substance: CERTOLIZUMAB PEGOL
     Indication: PSORIATIC ARTHROPATHY
     Dosage: 400 MG, EV 2 WEEKS(QOW)
     Route: 058
     Dates: start: 20170525, end: 20170612
  3. AUGMENTIN [Concomitant]
     Active Substance: AMOXICILLIN\CLAVULANATE POTASSIUM
     Indication: PRODUCT USED FOR UNKNOWN INDICATION
     Dosage: UNK
  4. CORTISONE [Concomitant]
     Active Substance: CORTISONE\HYDROCORTISONE
     Indication: HYPERSENSITIVITY
     Dosage: UNK
     Dates: start: 20170626
  5. BACTROBAN [Concomitant]
     Active Substance: MUPIROCIN\MUPIROCIN CALCIUM
     Indication: PRODUCT USED FOR UNKNOWN INDICATION
  6. FENISTIL [Concomitant]
     Active Substance: DIMETHINDENE
     Indication: URTICARIA
     Dosage: UNK
     Dates: start: 20170626, end: 20170626
  7. FLUCONAZOLE. [Concomitant]
     Active Substance: FLUCONAZOLE
     Indication: PRODUCT USED FOR UNKNOWN INDICATION
  8. NYSTATIN. [Concomitant]
     Active Substance: NYSTATIN
     Indication: PRODUCT USED FOR UNKNOWN INDICATION
  9. PREDNISONE. [Concomitant]
     Active Substance: PREDNISONE
     Indication: PRODUCT USED FOR UNKNOWN INDICATION
  10. MEDROL [Concomitant]
     Active Substance: METHYLPREDNISOLONE
     Indication: PRODUCT USED FOR UNKNOWN INDICATION
     Dosage: UNK
     Dates: end: 20170728

REACTIONS (7)
  - Systemic lupus erythematosus [Not Recovered/Not Resolved]
  - Pain [Unknown]
  - Viral rash [Unknown]
  - Arthralgia [Not Recovered/Not Resolved]
  - Oral mucosa erosion [Recovered/Resolved]
  - Headache [Unknown]
  - Drug eruption [Unknown]

NARRATIVE: CASE EVENT DATE: 2017
